FAERS Safety Report 6902950-0 (Version None)
Quarter: 2010Q3

REPORT INFORMATION
  Report Type: 
  Country: None (occurrence: None)
  Receive Date: 20100803
  Receipt Date: 20080814
  Transmission Date: 20110219
  Serious: No
  Sender: FDA-Public Use
  Company Number: US-PFIZER INC-2008069281

PATIENT
  Sex: Female
  Weight: 93.89 kg

DRUGS (6)
  1. LYRICA [Suspect]
     Indication: FIBROMYALGIA
     Dates: start: 20080601
  2. CYCLOBENZAPRINE [Concomitant]
  3. MELOXICAM [Concomitant]
  4. TOPAMAX [Concomitant]
  5. CYMBALTA [Concomitant]
  6. OMEPRAZOLE [Concomitant]

REACTIONS (2)
  - MEMORY IMPAIRMENT [None]
  - WEIGHT INCREASED [None]
